FAERS Safety Report 12509539 (Version 2)
Quarter: 2016Q3

REPORT INFORMATION
  Report Type: Spontaneous
  Country: US (occurrence: US)
  Receive Date: 20160629
  Receipt Date: 20160801
  Transmission Date: 20161109
  Serious: Yes (Other)
  Sender: FDA-Public Use
  Company Number: US-PROCTER+GAMBLE-GS16081088

PATIENT
  Age: 62 Year
  Sex: Female
  Weight: 61.22 kg

DRUGS (8)
  1. METAMUCIL THERAPY FOR REGULARITY [Suspect]
     Active Substance: PSYLLIUM HUSK
     Indication: CONSTIPATION PROPHYLAXIS
     Dosage: 2 WAFER, 1 /DAY IN THE MORNING
     Route: 048
     Dates: end: 201606
  2. SYSTANE (HYPROMELLOSE 2910 (4000 MPA.S)) [Concomitant]
     Active Substance: HYPROMELLOSE 2910 (4000 MPA.S)
     Indication: DRY EYE
     Dosage: 1 APPLIC, AS NEEDED
     Route: 047
  3. CENTURY SILVER 50 + [Concomitant]
     Indication: ROUTINE HEALTH MAINTENANCE
     Dosage: 1 TABLET, MORNING
     Route: 048
  4. FOSAMAX [Concomitant]
     Active Substance: ALENDRONATE SODIUM
     Indication: OSTEOPOROSIS
     Dosage: 20 MG, 1 /WEEK
     Route: 048
  5. CALCIUM 600 + D [Concomitant]
     Active Substance: CALCIUM\VITAMIN D
     Indication: OSTEOPOROSIS
     Dosage: 1 UNK, 3 /DAY
  6. VITAMIN B12 [Concomitant]
     Active Substance: CYANOCOBALAMIN
     Indication: NERVOUS SYSTEM DISORDER
     Dosage: 0.5 MG, 1 /DAY
  7. CELLUVISC                          /00007001/ [Concomitant]
     Indication: DRY EYE
     Dosage: 1 VIAL IN EACH EYE AT NIGHT
     Route: 047
  8. COLACE [Concomitant]
     Active Substance: DOCUSATE SODIUM
     Indication: DIVERTICULUM
     Dosage: 100 MG, 2 /DAY
     Route: 048

REACTIONS (2)
  - Tooth fracture [Not Recovered/Not Resolved]
  - Product physical consistency issue [Unknown]

NARRATIVE: CASE EVENT DATE: 20160609
